FAERS Safety Report 5288265-8 (Version None)
Quarter: 2007Q2

REPORT INFORMATION
  Report Type: 
  Country: None (occurrence: None)
  Receive Date: 20070405
  Receipt Date: 20070327
  Transmission Date: 20071010
  Serious: Yes (Death, Hospitalization)
  Sender: FDA-Public Use
  Company Number: FR-ROCHE-474968

PATIENT
  Sex: Male

DRUGS (13)
  1. GANCICLOVIR SODIUM [Suspect]
     Indication: GLIOMA
     Dosage: FORM = INJECTION
     Route: 042
     Dates: start: 20061112, end: 20061125
  2. CEREPRO [Suspect]
     Indication: GLIOMA
     Dosage: FORM = INJECTION
     Route: 018
     Dates: start: 20061106, end: 20061106
  3. NEURONTIN [Concomitant]
     Dates: start: 20061019, end: 20070304
  4. BIPRETERAX [Concomitant]
     Dates: end: 20060615
  5. MEDROL [Concomitant]
     Dates: start: 20061019, end: 20070304
  6. OMEPRAZOLE [Concomitant]
     Dates: start: 20061106, end: 20070304
  7. DUPHALAC [Concomitant]
     Dates: start: 20061111, end: 20070304
  8. ACETAMINOPHEN [Concomitant]
     Dates: start: 20061106, end: 20070304
  9. ZOPHREN [Concomitant]
     Dates: start: 20061106, end: 20070304
  10. ENOXAPARIN SODIUM [Concomitant]
     Dates: start: 20061115, end: 20070304
  11. LACTULOSE [Concomitant]
     Dates: start: 20061115, end: 20070304
  12. PRIMPERAN INJ [Concomitant]
     Dates: start: 20061116
  13. MOTILIUM [Concomitant]
     Dosage: DRUG NAME REPORTED AS MOTILIUM ^BYK GULDEN^.
     Dates: start: 20061117, end: 20070304

REACTIONS (12)
  - ASTHENIA [None]
  - CONSTIPATION [None]
  - ESCHERICHIA INFECTION [None]
  - HYPOXIA [None]
  - KARNOFSKY SCALE WORSENED [None]
  - NERVOUS SYSTEM DISORDER [None]
  - POST PROCEDURAL COMPLICATION [None]
  - SEPSIS [None]
  - STATUS EPILEPTICUS [None]
  - URINARY TRACT INFECTION [None]
  - VOMITING [None]
  - WEIGHT DECREASED [None]
